FAERS Safety Report 20233937 (Version 1)
Quarter: 2021Q4

REPORT INFORMATION
  Report Type: Spontaneous
  Country: US (occurrence: None)
  Receive Date: 20211227
  Receipt Date: 20211227
  Transmission Date: 20220303
  Serious: Yes (Hospitalization)
  Sender: FDA-Public Use
  Company Number: None

PATIENT
  Age: 50 Year
  Sex: Male
  Weight: 73 kg

DRUGS (3)
  1. DEXAMETHASONE [Suspect]
     Active Substance: DEXAMETHASONE
     Indication: COVID-19
     Dosage: FREQUENCY : DAILY;?
     Route: 048
     Dates: start: 20211221, end: 20211223
  2. REGEN-COV [Suspect]
     Active Substance: CASIRIVIMAB\IMDEVIMAB
     Dates: start: 20211220, end: 20211220
  3. REMDESIVIR [Concomitant]
     Active Substance: REMDESIVIR
     Dates: end: 20211223

REACTIONS (5)
  - Substance-induced psychotic disorder [None]
  - Dyspnoea [None]
  - Hallucination [None]
  - Delirium [None]
  - Infection [None]

NARRATIVE: CASE EVENT DATE: 20211222
